FAERS Safety Report 5140838-9 (Version None)
Quarter: 2006Q4

REPORT INFORMATION
  Report Type: 
  Country: None (occurrence: None)
  Receive Date: 20061031
  Receipt Date: 20061019
  Transmission Date: 20070319
  Serious: Yes (Hospitalization)
  Sender: FDA-Public Use
  Company Number: MY-MERCK-0610MYS00011

PATIENT
  Age: 54 Year
  Sex: Female

DRUGS (3)
  1. FOSAMAX [Suspect]
     Indication: OSTEOPOROTIC FRACTURE
     Route: 048
     Dates: start: 20061018, end: 20061018
  2. ETORICOXIB [Concomitant]
     Route: 048
     Dates: start: 20061017
  3. VITAMIN D (UNSPECIFIED) [Concomitant]
     Route: 048
     Dates: start: 20060929

REACTIONS (2)
  - BONE PAIN [None]
  - PAIN [None]
